FAERS Safety Report 7088127-X (Version None)
Quarter: 2010Q4

REPORT INFORMATION
  Report Type: 
  Country: None (occurrence: None)
  Receive Date: 20101028
  Receipt Date: 20101018
  Transmission Date: 20110411
  Serious: Yes (Other)
  Sender: FDA-Public Use
  Company Number: 732192

PATIENT
  Age: 16 Year
  Sex: Male

DRUGS (2)
  1. METOCLOPRAMIDE [Suspect]
     Indication: NAUSEA
  2. (ANESTHETICS, GENERAL) [Concomitant]

REACTIONS (3)
  - CHOREA [None]
  - CONDITION AGGRAVATED [None]
  - DYSTONIA [None]
